FAERS Safety Report 6838622-0 (Version None)
Quarter: 2010Q3

REPORT INFORMATION
  Report Type: 
  Country: None (occurrence: None)
  Receive Date: 20100713
  Receipt Date: 20070619
  Transmission Date: 20110219
  Serious: No
  Sender: FDA-Public Use
  Company Number: US-PFIZER INC-2007049897

PATIENT
  Sex: Female
  Weight: 46.3 kg

DRUGS (4)
  1. CHANTIX [Suspect]
     Indication: SMOKING CESSATION THERAPY
     Dates: start: 20070609
  2. FIORICET [Concomitant]
     Indication: HEADACHE
  3. LORCET-HD [Concomitant]
  4. MULTIVITAMINS AND IRON [Concomitant]

REACTIONS (2)
  - DIZZINESS [None]
  - MEDICATION ERROR [None]
